FAERS Safety Report 10397046 (Version 2)
Quarter: 2014Q3

REPORT INFORMATION
  Report Type: Spontaneous
  Country: US (occurrence: US)
  Receive Date: 20140820
  Receipt Date: 20140827
  Transmission Date: 20150326
  Serious: Yes (Other)
  Sender: FDA-Public Use
  Company Number: US-TEVA-502744USA

PATIENT
  Age: 57 Year
  Sex: Male

DRUGS (4)
  1. ASPIRIN. [Suspect]
     Active Substance: ASPIRIN
     Route: 065
  2. ZOLPIDEM [Suspect]
     Active Substance: ZOLPIDEM\ZOLPIDEM TARTRATE
     Indication: INSOMNIA
  3. ZOLOFT [Concomitant]
     Active Substance: SERTRALINE HYDROCHLORIDE
  4. SYNTHROID [Concomitant]
     Active Substance: LEVOTHYROXINE SODIUM

REACTIONS (12)
  - Dysarthria [Recovered/Resolved]
  - Expired product administered [Unknown]
  - Glassy eyes [Recovered/Resolved]
  - Slow response to stimuli [Recovered/Resolved]
  - Amnesia [Unknown]
  - Feeling abnormal [Recovered/Resolved]
  - Product size issue [Unknown]
  - Altered state of consciousness [Recovered/Resolved]
  - Somnolence [Recovered/Resolved]
  - Slow speech [Recovered/Resolved]
  - Movement disorder [Recovered/Resolved]
  - Wrong drug administered [Unknown]

NARRATIVE: CASE EVENT DATE: 20140807
